FAERS Safety Report 12818768 (Version 1)
Quarter: 2016Q4

REPORT INFORMATION
  Report Type: Spontaneous
  Country: US (occurrence: US)
  Receive Date: 20161006
  Receipt Date: 20161006
  Transmission Date: 20170207
  Serious: Yes (Other)
  Sender: FDA-Public Use
  Company Number: None

PATIENT
  Age: 54 Year
  Sex: Male
  Weight: 80.55 kg

DRUGS (4)
  1. IC LEVOFLOXACIN DR. REDDY^S LABORATORIES LTD, BACHUPALLY, INDIA [Suspect]
     Active Substance: LEVOFLOXACIN
     Indication: INFECTION
     Dosage: ?          QUANTITY:10 TABLET(S);?
     Route: 048
     Dates: start: 20160927, end: 20161003
  2. IBUPROFEN. [Concomitant]
     Active Substance: IBUPROFEN
  3. ATORVASTATIN [Concomitant]
     Active Substance: ATORVASTATIN
  4. ADDEROLL XR [Concomitant]

REACTIONS (2)
  - Tendon pain [None]
  - Tendon injury [None]

NARRATIVE: CASE EVENT DATE: 20160927
